FAERS Safety Report 7388712-1 (Version None)
Quarter: 2011Q2

REPORT INFORMATION
  Report Type: 
  Country: None (occurrence: None)
  Receive Date: 20110401
  Receipt Date: 20110323
  Transmission Date: 20111010
  Serious: Yes (Hospitalization)
  Sender: FDA-Public Use
  Company Number: FR-BRISTOL-MYERS SQUIBB COMPANY-15635931

PATIENT
  Age: 76 Year
  Sex: Female

DRUGS (3)
  1. TAXOL [Suspect]
     Indication: BREAST CANCER METASTATIC
     Dates: start: 20090601
  2. ANASTROZOLE [Suspect]
     Indication: BREAST CANCER METASTATIC
     Dosage: ALSO GIVEN IN DEC2009
     Dates: start: 20090601
  3. AVASTIN [Suspect]
     Indication: BREAST CANCER METASTATIC
     Dosage: ALSO TAKEN IN DEC2009
     Dates: start: 20090601, end: 20110215

REACTIONS (3)
  - ARTERIAL STENOSIS [None]
  - ACUTE CORONARY SYNDROME [None]
  - CARDIAC FAILURE [None]
